FAERS Safety Report 6613813-2 (Version None)
Quarter: 2010Q1

REPORT INFORMATION
  Report Type: 
  Country: None (occurrence: None)
  Receive Date: 20100225
  Receipt Date: 20100212
  Transmission Date: 20100710
  Serious: Yes (Other)
  Sender: FDA-Public Use
  Company Number: DSM-2010-00101

PATIENT
  Age: 85 Year
  Sex: Female

DRUGS (5)
  1. AMLODIPINE BESYLATE AND OLMESARTAN MEDOXOMIL [Suspect]
     Indication: HYPERTENSION
     Dosage: ORAL
     Route: 048
     Dates: start: 20091201, end: 20091230
  2. ALLOPURINOL [Concomitant]
  3. DOXAZOSIN MESYLATE [Concomitant]
  4. ALISKIREN [Concomitant]
  5. NEBIVOLOL HCL [Concomitant]

REACTIONS (3)
  - HYPERSENSITIVITY [None]
  - OEDEMA PERIPHERAL [None]
  - RASH PRURITIC [None]
